FAERS Safety Report 7182945-5 (Version None)
Quarter: 2010Q4

REPORT INFORMATION
  Report Type: 
  Country: None (occurrence: None)
  Receive Date: 20101209
  Receipt Date: 20101112
  Transmission Date: 20110411
  Serious: Yes (Other)
  Sender: FDA-Public Use
  Company Number: PL-021432

PATIENT
  Age: 73 Year
  Sex: Male

DRUGS (2)
  1. CHLORAMBUCIL [Suspect]
     Indication: CHRONIC LYMPHOCYTIC LEUKAEMIA
     Dosage: 10MG/M2 DAYS 1-7 EVERY 28 DAYS
     Route: 048
     Dates: start: 20100512
  2. OFATUMUMAB [Suspect]
     Indication: CHRONIC LYMPHOCYTIC LEUKAEMIA
     Dosage: INJECTION 300MG AT DAY 1, 1000MG AT DAY 8 FOLLOWED BY 1000MG EVERY 28 DAYS
     Route: 042
     Dates: start: 20100512

REACTIONS (2)
  - HERPES ZOSTER OTICUS [None]
  - VERTIGO LABYRINTHINE [None]
